FAERS Safety Report 6847365-9 (Version None)
Quarter: 2010Q3

REPORT INFORMATION
  Report Type: 
  Country: None (occurrence: None)
  Receive Date: 20100716
  Receipt Date: 20100713
  Transmission Date: 20110219
  Serious: Yes (Disabling)
  Sender: FDA-Public Use
  Company Number: AU-B.I. PHARMACEUTICALS,INC./RIDGEFIELD-2010-AU-00512AU

PATIENT
  Sex: Female

DRUGS (1)
  1. ATROVENT [Suspect]
     Dates: start: 20100712

REACTIONS (1)
  - SKIN LACERATION [None]
